FAERS Safety Report 4573956-4 (Version None)
Quarter: 2005Q1

REPORT INFORMATION
  Report Type: 
  Country: None (occurrence: None)
  Receive Date: 20050204
  Receipt Date: 20050119
  Transmission Date: 20050727
  Serious: Yes (Hospitalization)
  Sender: FDA-Public Use
  Company Number: 8006824

PATIENT
  Age: 7 Year
  Sex: Female
  Weight: 27 kg

DRUGS (13)
  1. KEPPRA [Suspect]
     Indication: CONVULSION
     Dosage: 500 MG 2/D PO
     Route: 048
     Dates: start: 20040603, end: 20040608
  2. KEPPRA [Suspect]
     Indication: CONVULSION
     Dosage: 700 MG 2/D PO
     Route: 048
     Dates: start: 20040624, end: 20040627
  3. KEPPRA [Suspect]
     Indication: CONVULSION
     Dosage: 700 MG 2/D PO
     Route: 048
     Dates: start: 20040703, end: 20040712
  4. KEPPRA [Suspect]
     Indication: CONVULSION
     Dosage: 400 MG 2/D PO
     Route: 048
     Dates: start: 20040712, end: 20040714
  5. KEPPRA [Suspect]
     Indication: CONVULSION
     Dosage: 200 MG 2/D PO
     Route: 048
     Dates: start: 20040714, end: 20040716
  6. VANCOMYCIN [Concomitant]
  7. CEFTAZIDIME [Concomitant]
  8. FLUCONAZOLE [Concomitant]
  9. ACYCLOVIR [Concomitant]
  10. NEUPOGEN [Concomitant]
  11. MIRALAX [Concomitant]
  12. MEROPENEM [Concomitant]
  13. OXCARBAZEPINE [Concomitant]

REACTIONS (3)
  - NEUTROPENIA [None]
  - RED BLOOD CELL COUNT DECREASED [None]
  - WHITE BLOOD CELL COUNT DECREASED [None]
